FAERS Safety Report 13486764 (Version 4)
Quarter: 2017Q2

REPORT INFORMATION
  Report Type: Report from Study
  Country: DE (occurrence: DE)
  Receive Date: 20170426
  Receipt Date: 20170526
  Transmission Date: 20170830
  Serious: Yes (Other)
  Sender: FDA-Public Use
  Company Number: DE-OTSUKA-2017_009247

PATIENT
  Age: 48 Year
  Sex: Female
  Weight: 63.5 kg

DRUGS (20)
  1. TOLVAPTAN [Suspect]
     Active Substance: TOLVAPTAN
     Dosage: PLACEBO, QD (IN EVENING)
     Route: 048
     Dates: start: 20151209, end: 20151221
  2. TOLVAPTAN [Suspect]
     Active Substance: TOLVAPTAN
     Dosage: 30 MG, QD (IN MORNING) (TITRATION)
     Route: 048
     Dates: start: 20151222, end: 20151225
  3. TOLVAPTAN [Suspect]
     Active Substance: TOLVAPTAN
     Dosage: 45 MG, QD (IN MORNING) (TITRATION)
     Route: 048
     Dates: start: 20151226, end: 20151228
  4. TOLVAPTAN [Suspect]
     Active Substance: TOLVAPTAN
     Dosage: 15 MG, QD (IN EVENING) (TITRATION)
     Route: 048
     Dates: start: 20151226, end: 20151228
  5. TOLVAPTAN [Suspect]
     Active Substance: TOLVAPTAN
     Dosage: 30 MG, QD (IN EVENING) (TITRATION)
     Route: 048
     Dates: start: 20151229, end: 20160101
  6. TOLVAPTAN [Suspect]
     Active Substance: TOLVAPTAN
     Dosage: 30 MG, QD (IN EVENING) (TITRATION)
     Route: 048
     Dates: start: 20160102, end: 20160104
  7. TOLVAPTAN [Suspect]
     Active Substance: TOLVAPTAN
     Dosage: 60 MG, QD (IN MORNING) ( TOLVAPTAN RUN IN)
     Route: 048
     Dates: start: 20160105, end: 20160125
  8. TOLVAPTAN [Suspect]
     Active Substance: TOLVAPTAN
     Dosage: 60 MG, QD (IN MORNING) (RANDOMIZED)
     Route: 048
     Dates: start: 20160126, end: 20170123
  9. TOLVAPTAN [Suspect]
     Active Substance: TOLVAPTAN
     Dosage: 60 MG, QD (IN MORNING) (TITRATION)
     Route: 048
     Dates: start: 20151229, end: 20160101
  10. JODTHYROX [Concomitant]
     Active Substance: LEVOTHYROXINE SODIUM\POTASSIUM IODIDE
     Indication: HYPOTHYROIDISM
     Dosage: 100 ?G, QD (IN MORNING 1-0-0)
     Route: 048
     Dates: start: 2000
  11. TOLVAPTAN [Suspect]
     Active Substance: TOLVAPTAN
     Dosage: 30 MG, QD (IN EVENING)
     Route: 048
     Dates: start: 20170214, end: 20170418
  12. TOLVAPTAN [Suspect]
     Active Substance: TOLVAPTAN
     Dosage: PLACEBO, QD (IN MORNING)
     Route: 048
     Dates: start: 20151209, end: 20151221
  13. TOLVAPTAN [Suspect]
     Active Substance: TOLVAPTAN
     Indication: CONGENITAL CYSTIC KIDNEY DISEASE
     Dosage: 60 MG, QD (IN MORNING)
     Route: 048
     Dates: start: 20170214, end: 20170418
  14. CHARIVA [Concomitant]
     Indication: CONTRACEPTION
     Dosage: 0.03 MG, QD
     Route: 048
     Dates: start: 2000
  15. TOLVAPTAN [Suspect]
     Active Substance: TOLVAPTAN
     Dosage: 90 MG, QD (IN MORNING) (TITRATION)
     Route: 048
     Dates: start: 20160102, end: 20160104
  16. TOLVAPTAN [Suspect]
     Active Substance: TOLVAPTAN
     Dosage: 30 MG, QD (IN EVENING) ( TOLVAPTAN RUN IN)
     Route: 048
     Dates: start: 20160105, end: 20160125
  17. TOLVAPTAN [Suspect]
     Active Substance: TOLVAPTAN
     Dosage: 30 MG, QD (IN EVENING) (RANDOMIZED)
     Route: 048
     Dates: start: 20160126, end: 20170123
  18. DEKRISTOL [Concomitant]
     Active Substance: CHOLECALCIFEROL
     Indication: VITAMIN D DEFICIENCY
     Dosage: 20000 IU, QM
     Route: 048
     Dates: start: 2013
  19. TOLVAPTAN [Suspect]
     Active Substance: TOLVAPTAN
     Dosage: 15 MG, QD (IN EVENING) (TITRATION)
     Route: 048
     Dates: start: 20151222, end: 20151225
  20. VALSARTAN. [Concomitant]
     Active Substance: VALSARTAN
     Indication: HYPERTENSION
     Dosage: 40 MG, UNK (IN MORNING, 1/2-0-0)
     Route: 048
     Dates: start: 2012

REACTIONS (1)
  - Alanine aminotransferase increased [Not Recovered/Not Resolved]

NARRATIVE: CASE EVENT DATE: 20170412
